FAERS Safety Report 16255258 (Version 1)
Quarter: 2019Q2

REPORT INFORMATION
  Report Type: Spontaneous
  Country: US (occurrence: US)
  Receive Date: 20190429
  Receipt Date: 20190429
  Transmission Date: 20190711
  Serious: No
  Sender: FDA-Public Use
  Company Number: None

PATIENT
  Age: 56 Year
  Sex: Male
  Weight: 108 kg

DRUGS (1)
  1. DOTAREM [Suspect]
     Active Substance: GADOTERATE MEGLUMINE
     Indication: NUCLEAR MAGNETIC RESONANCE IMAGING
     Dosage: ?          OTHER FREQUENCY:AT TIME OF MRI;?
     Route: 042
     Dates: start: 20190325, end: 20190325

REACTIONS (8)
  - Headache [None]
  - Sensory disturbance [None]
  - Visual impairment [None]
  - Arthralgia [None]
  - Myalgia [None]
  - Vision blurred [None]
  - Muscle twitching [None]
  - Paraesthesia [None]

NARRATIVE: CASE EVENT DATE: 20190325
